FAERS Safety Report 13934907 (Version 4)
Quarter: 2018Q2

REPORT INFORMATION
  Report Type: Spontaneous
  Country: JP (occurrence: JP)
  Receive Date: 20170905
  Receipt Date: 20180626
  Transmission Date: 20180711
  Serious: Yes (Death, Other)
  Sender: FDA-Public Use
  Company Number: JP-ROCHE-1989204

PATIENT
  Age: 79 Year
  Sex: Female
  Weight: 45 kg

DRUGS (9)
  1. LANSOPRAZOLE. [Concomitant]
     Active Substance: LANSOPRAZOLE
     Dosage: DOSAGE IS UNCERTAIN.
     Route: 065
     Dates: start: 20160308
  2. XELODA [Suspect]
     Active Substance: CAPECITABINE
     Indication: BREAST CANCER
     Dosage: 14 DAYS ADMINSTRATION FOLLOWED BY 7 DAYS REST.?TREATMENT LINE: 2ND LINE
     Route: 048
     Dates: start: 20170131, end: 20170214
  3. AZOSEMIDE [Concomitant]
     Active Substance: AZOSEMIDE
     Dosage: DOSAGE IS UNCERTAIN.
     Route: 065
     Dates: start: 20160308
  4. TYKERB [Suspect]
     Active Substance: LAPATINIB DITOSYLATE
     Indication: BREAST CANCER
     Route: 048
     Dates: start: 20170131, end: 20170213
  5. XELODA [Suspect]
     Active Substance: CAPECITABINE
     Dosage: 14 DAYS ADMINSTRATION FOLLOWED BY 7 DAYS REST.?TREATMENT LINE: 2ND LINE
     Route: 048
     Dates: start: 20170228, end: 20170306
  6. BISOPROLOL [Concomitant]
     Active Substance: BISOPROLOL
     Dosage: DOSAGE IS UNCERTAIN.
     Route: 065
     Dates: start: 20160308
  7. TYKERB [Suspect]
     Active Substance: LAPATINIB DITOSYLATE
     Indication: BREAST CANCER
     Route: 048
     Dates: start: 20170221, end: 20170326
  8. ENALAPRIL MALEATE. [Concomitant]
     Active Substance: ENALAPRIL MALEATE
     Dosage: DOSAGE IS UNCERTAIN.
     Route: 065
     Dates: start: 20160308
  9. LIXIANA [Concomitant]
     Active Substance: EDOXABAN TOSYLATE
     Dosage: DOSAGE IS UNCERTAIN.
     Route: 065
     Dates: start: 20170123

REACTIONS (13)
  - Disseminated intravascular coagulation [Fatal]
  - General physical health deterioration [Unknown]
  - Renal impairment [Unknown]
  - Diarrhoea [Recovered/Resolved]
  - Palmar-plantar erythrodysaesthesia syndrome [Recovered/Resolved]
  - Hepatobiliary disease [Fatal]
  - Breast cancer [Fatal]
  - Hypokalaemia [Recovered/Resolved]
  - Stomatitis [Recovered/Resolved]
  - Diarrhoea [Unknown]
  - Pigmentation lip [Recovered/Resolved]
  - Hepatic failure [Fatal]
  - Stevens-Johnson syndrome [Recovering/Resolving]

NARRATIVE: CASE EVENT DATE: 20170210
